FAERS Safety Report 12337277 (Version 2)
Quarter: 2016Q2

REPORT INFORMATION
  Report Type: Spontaneous
  Country: GR (occurrence: GR)
  Receive Date: 20160505
  Receipt Date: 20160513
  Transmission Date: 20160815
  Serious: Yes (Other)
  Sender: FDA-Public Use
  Company Number: GR-009507513-1605GRC002930

PATIENT
  Age: 70 Year
  Sex: Female

DRUGS (2)
  1. CUBICIN [Suspect]
     Active Substance: DAPTOMYCIN
     Indication: CELLULITIS
     Dosage: 4 MG/KG, QD
     Route: 042
  2. RULID [Suspect]
     Active Substance: ROXITHROMYCIN
     Indication: CELLULITIS
     Dosage: 300 MG, QD
     Route: 048

REACTIONS (2)
  - Disease recurrence [Recovered/Resolved]
  - Cellulitis [Recovered/Resolved]
